FAERS Safety Report 13995032 (Version 1)
Quarter: 2017Q3

REPORT INFORMATION
  Report Type: Spontaneous
  Country: US (occurrence: US)
  Receive Date: 20170921
  Receipt Date: 20170921
  Transmission Date: 20171128
  Serious: No
  Sender: FDA-Public Use
  Company Number: US-ORION CORPORATION ORION PHARMA-TREX2017-1757

PATIENT
  Sex: Female

DRUGS (7)
  1. PREDNISONE. [Suspect]
     Active Substance: PREDNISONE
     Route: 065
  2. PREDNISONE. [Suspect]
     Active Substance: PREDNISONE
     Route: 065
  3. HYDROXYCHLOROQUINE [Suspect]
     Active Substance: HYDROXYCHLOROQUINE
     Route: 065
  4. DAPSONE. [Suspect]
     Active Substance: DAPSONE
     Route: 065
  5. MYCOPHENOLATE MOFETIL. [Suspect]
     Active Substance: MYCOPHENOLATE MOFETIL
     Route: 065
  6. METHOTREXATE. [Suspect]
     Active Substance: METHOTREXATE
     Route: 065
  7. CHLOROQUINE. [Suspect]
     Active Substance: CHLOROQUINE
     Route: 065

REACTIONS (2)
  - Drug intolerance [Unknown]
  - Treatment failure [Unknown]
